FAERS Safety Report 6288079-6 (Version None)
Quarter: 2009Q3

REPORT INFORMATION
  Report Type: 
  Country: None (occurrence: None)
  Receive Date: 20090729
  Receipt Date: 20090722
  Transmission Date: 20100115
  Serious: Yes (Death)
  Sender: FDA-Public Use
  Company Number: PHHY2009JP21329

PATIENT
  Sex: Male
  Weight: 53 kg

DRUGS (6)
  1. ZOMETA [Suspect]
     Indication: METASTASES TO BONE
     Dosage: 4 MG (SINGLE DOSE)
     Route: 041
     Dates: start: 20090528
  2. MORPHINE HYDROCHLORIDE [Concomitant]
     Indication: PAIN
     Dosage: 20 MG, UNK
     Route: 041
     Dates: start: 20090525, end: 20090528
  3. MERISLON [Concomitant]
     Indication: DIZZINESS
     Dosage: 18 MG, UNK
     Route: 048
     Dates: start: 20090513, end: 20090528
  4. THIATON [Concomitant]
     Indication: DIARRHOEA
     Dosage: 30 MG, UNK
     Route: 048
     Dates: start: 20090328, end: 20090528
  5. BISMUTH SUBNITRATE [Concomitant]
     Indication: DIARRHOEA
     Dosage: 3 G, UNK
     Route: 048
     Dates: start: 20090421, end: 20090528
  6. ALBUMIN TANNATE [Concomitant]
     Indication: DIARRHOEA
     Dosage: 2 G, UNK
     Route: 048
     Dates: start: 20090421, end: 20090528

REACTIONS (2)
  - CARDIAC FAILURE ACUTE [None]
  - CARDIO-RESPIRATORY ARREST [None]
